FAERS Safety Report 24065927 (Version 1)
Quarter: 2024Q3

REPORT INFORMATION
  Report Type: Spontaneous
  Country: US (occurrence: US)
  Receive Date: 20240709
  Receipt Date: 20240709
  Transmission Date: 20241017
  Serious: No
  Sender: VIRTUS PHARMACEUTICALS
  Company Number: US-VIRTUS PHARMACEUTICALS, LLC-2023VTS00041

PATIENT
  Sex: Female

DRUGS (6)
  1. PROGESTERONE [Suspect]
     Active Substance: PROGESTERONE
     Indication: Heavy menstrual bleeding
     Dosage: 400 MG, 1X/DAY
  2. PROGESTERONE [Suspect]
     Active Substance: PROGESTERONE
     Indication: Hormone replacement therapy
  3. PROGESTERONE [Suspect]
     Active Substance: PROGESTERONE
     Indication: Heavy menstrual bleeding
  4. PROGESTERONE [Suspect]
     Active Substance: PROGESTERONE
     Indication: Hormone replacement therapy
  5. PROGESTERONE [Suspect]
     Active Substance: PROGESTERONE
     Indication: Heavy menstrual bleeding
     Dosage: 400 MG, 1X/DAY
  6. PROGESTERONE [Suspect]
     Active Substance: PROGESTERONE
     Indication: Hormone replacement therapy

REACTIONS (4)
  - Heavy menstrual bleeding [Unknown]
  - Migraine [Unknown]
  - Intermenstrual bleeding [Unknown]
  - Drug ineffective [Recovered/Resolved]
